FAERS Safety Report 6912950-2 (Version None)
Quarter: 2010Q3

REPORT INFORMATION
  Report Type: 
  Country: None (occurrence: None)
  Receive Date: 20100806
  Receipt Date: 20090410
  Transmission Date: 20110219
  Serious: No
  Sender: FDA-Public Use
  Company Number: US-PFIZER INC-2009175439

PATIENT
  Sex: Male

DRUGS (1)
  1. VFEND [Suspect]
     Indication: SINUSITIS FUNGAL
     Dosage: 250 MG, 2X/DAY
     Dates: start: 20090201, end: 20090201

REACTIONS (5)
  - ABDOMINAL PAIN [None]
  - ENTERITIS [None]
  - INFLUENZA LIKE ILLNESS [None]
  - PYREXIA [None]
  - RHINORRHOEA [None]
